FAERS Safety Report 7590454-4 (Version None)
Quarter: 2011Q2

REPORT INFORMATION
  Report Type: 
  Country: None (occurrence: None)
  Receive Date: 20110627
  Receipt Date: 20110620
  Transmission Date: 20111010
  Serious: Yes (Hospitalization)
  Sender: FDA-Public Use
  Company Number: JPI-P-015540

PATIENT
  Age: 56 Year
  Sex: Female
  Weight: 49.8957 kg

DRUGS (16)
  1. ALBUTEROL [Concomitant]
  2. DICYCLOMINE [Concomitant]
  3. POLYETHYLENE GLYCOL 3350-OTC [Concomitant]
  4. XYREM [Suspect]
     Indication: NARCOLEPSY
     Dosage: ORAL
     Route: 048
     Dates: start: 20051101, end: 20110401
  5. STOOL SOFTENER [Concomitant]
  6. ARMODAFINIL [Concomitant]
  7. LEVOTHYROXINE SODIUM [Concomitant]
  8. CALCIUM CARBONATE [Concomitant]
  9. POTASSIUM [Concomitant]
  10. DULOXETINE HYDROCHLORIDE [Concomitant]
  11. ETANERCEPT [Concomitant]
  12. AMLODIPINE [Concomitant]
  13. VALSARTAN [Concomitant]
  14. SUMATRIPTAN SUCCINATE [Concomitant]
  15. MULTI-VITAMIN [Concomitant]
  16. HYDROMORPHONE HCL [Concomitant]

REACTIONS (4)
  - CARDIOMYOPATHY [None]
  - HYPERTENSION [None]
  - CONDITION AGGRAVATED [None]
  - PULMONARY OEDEMA [None]
